FAERS Safety Report 11917111 (Version 4)
Quarter: 2017Q1

REPORT INFORMATION
  Report Type: Spontaneous
  Country: DK (occurrence: DK)
  Receive Date: 20160114
  Receipt Date: 20170329
  Transmission Date: 20170428
  Serious: Yes (Hospitalization)
  Sender: FDA-Public Use
  Company Number: DK-BAXTER-2016BAX000646

PATIENT
  Age: 29 Year
  Sex: Male

DRUGS (15)
  1. ETOPOSIDE. [Suspect]
     Active Substance: ETOPOSIDE
     Indication: HODGKIN^S DISEASE
     Dosage: BASE BEACOPP, CYCLICAL, DAY 1-3, SERIES 1 TO 3
     Route: 040
     Dates: start: 20120113
  2. BLEOMYCIN [Suspect]
     Active Substance: BLEOMYCIN SULFATE
     Indication: HODGKIN^S DISEASE
     Dosage: STYRENGTH: 15000 IE, ESCALATED BEACOPP, CYCLICAL, DAY 8, SERIES 1 TO 3
     Route: 040
     Dates: start: 20120113, end: 20120214
  3. ONCOVIN [Suspect]
     Active Substance: VINCRISTINE SULFATE
     Indication: HODGKIN^S DISEASE
     Dosage: ESCALATED BEACOPP I.E. CHEMOTHERAPY IN HIGH DOSES X 3, MAX 2 MG, CYCLICAL, DAY 8, SERIES 1 TO 3
     Route: 042
     Dates: start: 20120113
  4. ADRIAMYCIN [Suspect]
     Active Substance: DOXORUBICIN HYDROCHLORIDE
     Indication: HODGKIN^S DISEASE
     Dosage: ESCALATED BEACOPP I.E. CHEMOTHERAPY IN HIGH DOSES X 3, CYCLICAL, DAY 1, SERIES 1 TO 3
     Route: 040
     Dates: start: 20120113
  5. ADRIAMYCIN [Suspect]
     Active Substance: DOXORUBICIN HYDROCHLORIDE
     Dosage: STANDARD BEACOPP BASELINE X 5, CYCLICAL, DAY 1, SERIES 4-8
     Route: 040
     Dates: end: 20120612
  6. NATULAN [Suspect]
     Active Substance: PROCARBAZINE HYDROCHLORIDE
     Indication: HODGKIN^S DISEASE
     Dosage: STYRENGHT: 50 MG, ESCALATED BEACOPP I.E. CHEMOTHERAPY IN HIGH DOSES X 3, CYCLICAL, DAY 1-7, SERIES 1
     Route: 048
     Dates: start: 20120113
  7. PREDNISOLONE. [Suspect]
     Active Substance: PREDNISOLONE
     Indication: HODGKIN^S DISEASE
     Dosage: ESCALATED BEACOPP I.E. CHEMOTHERAPY IN HIGH DOSES X 3, CYCLICAL, DAY 1-14, SERIES 1 TO 3
     Route: 048
     Dates: start: 20120113
  8. PREDNISOLONE. [Suspect]
     Active Substance: PREDNISOLONE
     Dosage: STANDARD BEACOPP BASELINE X 5, CYCLICAL, DAY 1-14, SERIES 4-8
     Route: 048
     Dates: end: 20120612
  9. NEULASTA [Concomitant]
     Active Substance: PEGFILGRASTIM
     Indication: HODGKIN^S DISEASE
     Dosage: STYRENGTH: 6 MG.
     Route: 065
     Dates: start: 201201, end: 2012
  10. ONCOVIN [Suspect]
     Active Substance: VINCRISTINE SULFATE
     Dosage: STANDARD BEACOPP BASELINE X 5, MAX 2 MG, CYCLICAL, DAY 8, SERIES 4-8
     Route: 042
     Dates: end: 20120612
  11. NATULAN [Suspect]
     Active Substance: PROCARBAZINE HYDROCHLORIDE
     Dosage: STYRENGHT: 50 MG, STANDARD BEACOPP BASELINE X 5, CYCLICAL, DEAY 1-7, SERIES 4-8
     Route: 048
     Dates: end: 20120612
  12. SENDOXAN [Suspect]
     Active Substance: CYCLOPHOSPHAMIDE
     Indication: HODGKIN^S DISEASE
     Dosage: ESCALATED BEACOPP I.E. CHEMOTHERAPY IN HIGH DOSES X 3, CYCLICAL, DAY 1, SERIES 1 TO 3
     Route: 042
     Dates: start: 20120113
  13. ETOPOSIDE. [Suspect]
     Active Substance: ETOPOSIDE
     Dosage: DOSE-ESCALATED BEACOPP, CYCLICAL, DAY 1-3, SERIES 4-8
     Route: 040
     Dates: end: 20120612
  14. SENDOXAN [Suspect]
     Active Substance: CYCLOPHOSPHAMIDE
     Dosage: STANDARD BEACOPP BASELINE X 5, CYCLICAL, DAY 1, SERIES 4-8
     Route: 042
     Dates: end: 20120612
  15. BLEOMYCIN [Suspect]
     Active Substance: BLEOMYCIN SULFATE
     Indication: HODGKIN^S DISEASE
     Dosage: STRENGTH: 15000 IE, BASE BEACOPP, CYCLICAL, DAY 8, SERIES 4-8
     Route: 040
     Dates: start: 20120306, end: 20120612

REACTIONS (22)
  - Night sweats [Unknown]
  - Dizziness [Not Recovered/Not Resolved]
  - Fatigue [Not Recovered/Not Resolved]
  - Abdominal distension [Unknown]
  - Abdominal pain upper [Not Recovered/Not Resolved]
  - Nausea [Recovered/Resolved]
  - Musculoskeletal pain [Not Recovered/Not Resolved]
  - Gastrooesophageal reflux disease [Not Recovered/Not Resolved]
  - Diarrhoea [Not Recovered/Not Resolved]
  - Tinnitus [Recovered/Resolved]
  - Headache [Not Recovered/Not Resolved]
  - Paraesthesia [Not Recovered/Not Resolved]
  - Pharyngitis [Unknown]
  - Chest pain [Not Recovered/Not Resolved]
  - Irritable bowel syndrome [Unknown]
  - Arthralgia [Not Recovered/Not Resolved]
  - Dyspnoea [Not Recovered/Not Resolved]
  - Palpitations [Not Recovered/Not Resolved]
  - Breast pain [Unknown]
  - Back pain [Not Recovered/Not Resolved]
  - Sensory disturbance [Recovered/Resolved]
  - Abdominal discomfort [Not Recovered/Not Resolved]

NARRATIVE: CASE EVENT DATE: 201201
